FAERS Safety Report 8620061-3 (Version None)
Quarter: 2012Q3

REPORT INFORMATION
  Report Type: 
  Country: None (occurrence: None)
  Receive Date: 20120816
  Receipt Date: 20120816
  Transmission Date: 20120928
  Serious: Yes (Other)
  Sender: FDA-Public Use
  Company Number: None

PATIENT
  Age: 57 Year
  Sex: Female
  Weight: 60.3284 kg

DRUGS (2)
  1. ACYCLOVIR [Suspect]
     Indication: ORAL HERPES
     Dosage: 1 TAB 3 TIMES A DAY PO DAYS
     Route: 048
     Dates: start: 20120811, end: 20120811
  2. ACYCLOVIR [Suspect]
     Indication: ORAL HERPES
     Dosage: 1 TAB 3 TIMES A DAY PO DAYS
     Route: 048
     Dates: start: 20120717, end: 20120719

REACTIONS (1)
  - DRUG HYPERSENSITIVITY [None]
